FAERS Safety Report 12641567 (Version 2)
Quarter: 2016Q3

REPORT INFORMATION
  Report Type: Report from Study
  Country: US (occurrence: US)
  Receive Date: 20160810
  Receipt Date: 20160824
  Transmission Date: 20161109
  Serious: Yes (Hospitalization, Other)
  Sender: FDA-Public Use
  Company Number: US-AMGEN-USASP2012072254

PATIENT
  Age: 51 Year
  Sex: Female

DRUGS (5)
  1. ENBREL [Suspect]
     Active Substance: ETANERCEPT
     Indication: RHEUMATOID ARTHRITIS
     Dosage: 25 MG, 2 TIMES/WK
     Route: 065
     Dates: start: 20030101
  2. ENBREL [Suspect]
     Active Substance: ETANERCEPT
     Indication: STEM CELL TRANSPLANT
  3. ENBREL [Suspect]
     Active Substance: ETANERCEPT
     Indication: IDIOPATHIC PNEUMONIA SYNDROME
  4. ENBREL [Suspect]
     Active Substance: ETANERCEPT
     Indication: OBLITERATIVE BRONCHIOLITIS
     Dosage: UNK
     Route: 065
  5. ENBREL [Suspect]
     Active Substance: ETANERCEPT
     Indication: LUNG DISORDER

REACTIONS (6)
  - Dyspnoea [Recovered/Resolved]
  - Breast cancer [Recovered/Resolved]
  - Pneumonia [Unknown]
  - Memory impairment [Not Recovered/Not Resolved]
  - Gallbladder disorder [Unknown]
  - Pain [Unknown]

NARRATIVE: CASE EVENT DATE: 201311
